FAERS Safety Report 9769943 (Version 2)
Quarter: 2013Q4

REPORT INFORMATION
  Report Type: Spontaneous
  Country: US (occurrence: US)
  Receive Date: 20131218
  Receipt Date: 20131218
  Transmission Date: 20140711
  Serious: No
  Sender: FDA-Public Use
  Company Number: US-VERTEX PHARMACEUTICALS INC-AE-2011-000803

PATIENT
  Age: 54 Year
  Sex: Female
  Weight: 72.73 kg

DRUGS (7)
  1. INCIVEK [Suspect]
     Indication: HEPATITIS C
     Route: 048
     Dates: start: 20110802
  2. PEGASYS [Concomitant]
     Indication: HEPATITIS C
     Route: 058
     Dates: start: 20110802
  3. RIBAVIRIN [Concomitant]
     Indication: HEPATITIS C
     Route: 048
     Dates: start: 20110802
  4. ZOLOFT [Concomitant]
     Indication: DEPRESSION
     Route: 048
  5. TRAMADOL [Concomitant]
     Indication: PAIN
  6. ESTRADIOL [Concomitant]
     Indication: BLOOD OESTROGEN
  7. PROGESTERONE CREAM [Concomitant]
     Indication: PROGESTERONE
     Route: 061

REACTIONS (1)
  - Rash pruritic [Recovered/Resolved]
